FAERS Safety Report 20985087 (Version 3)
Quarter: 2022Q3

REPORT INFORMATION
  Report Type: Spontaneous
  Country: GR (occurrence: GR)
  Receive Date: 20220621
  Receipt Date: 20220712
  Transmission Date: 20221026
  Serious: Yes (Hospitalization, Other)
  Sender: FDA-Public Use
  Company Number: GR-ELP-2022_056

PATIENT
  Age: 68 Year
  Sex: Male
  Weight: 77 kg

DRUGS (12)
  1. REMERON [Suspect]
     Active Substance: MIRTAZAPINE
     Indication: Product used for unknown indication
     Dosage: UNK, NOT SPECIFIED WHETHER TREATMENT WITH REMERON INITIATED IN APRIL OR MAY 2022
     Route: 048
     Dates: start: 2022
  2. AMISULPRIDE [Suspect]
     Active Substance: AMISULPRIDE
     Indication: Product used for unknown indication
     Dosage: UNK, NOT SPECIFIED WHETHER TREATMENT WITH SOLIAN INITIATED IN APRIL OR MAY 2022
     Route: 048
     Dates: start: 2022
  3. ZYPREXA [Suspect]
     Active Substance: OLANZAPINE
     Indication: Product used for unknown indication
     Dosage: UNK
     Route: 048
     Dates: start: 202204, end: 202204
  4. ZOLOFT [Suspect]
     Active Substance: SERTRALINE HYDROCHLORIDE
     Indication: Product used for unknown indication
     Dosage: UNK
     Route: 048
     Dates: start: 202204, end: 202204
  5. QUETIAPINE FUMARATE [Suspect]
     Active Substance: QUETIAPINE FUMARATE
     Indication: Product used for unknown indication
     Dosage: UNK, NOT SPECIFIED WHETHER TREATMENT WITH ETIAPINE INITIATED IN APRIL OR MAY 2022
     Route: 048
     Dates: start: 2022
  6. CEFIXIME [Suspect]
     Active Substance: CEFIXIME
     Indication: Urinary tract infection
     Dosage: 400 MG, 1X1
     Dates: start: 202204, end: 202204
  7. XANAX [Suspect]
     Active Substance: ALPRAZOLAM
     Indication: Product used for unknown indication
     Dosage: UNK, NOT SPECIFIED WHETHER TREATMENT WITH XANAX INITIATED IN APRIL OR MAY 2022
     Route: 048
     Dates: start: 2022
  8. ESCITALOPRAM OXALATE [Suspect]
     Active Substance: ESCITALOPRAM OXALATE
     Indication: Product used for unknown indication
     Dosage: 10 MG
     Route: 048
     Dates: start: 202205, end: 202205
  9. CIPROFLOXACIN HYDROCHLORIDE [Suspect]
     Active Substance: CIPROFLOXACIN HYDROCHLORIDE
     Indication: Urinary tract infection
     Dosage: UNK, 1X2
     Route: 048
     Dates: start: 202203, end: 20220330
  10. TAVOR (LORAZEPAM) [Suspect]
     Active Substance: LORAZEPAM
     Indication: Product used for unknown indication
     Dosage: UNK
     Route: 048
     Dates: start: 202204, end: 202205
  11. ASPIRIN [Concomitant]
     Active Substance: ASPIRIN
     Dosage: UNK
  12. GLUCOPHAGE [Concomitant]
     Active Substance: METFORMIN HYDROCHLORIDE
     Indication: Blood glucose increased
     Dosage: UNK

REACTIONS (6)
  - Depression suicidal [Not Recovered/Not Resolved]
  - Fatigue [Unknown]
  - Phobia [Unknown]
  - Insomnia [Unknown]
  - Weight decreased [Unknown]
  - Decreased appetite [Unknown]

NARRATIVE: CASE EVENT DATE: 20220301
